FAERS Safety Report 6601637-1 (Version None)
Quarter: 2010Q1

REPORT INFORMATION
  Report Type: 
  Country: None (occurrence: None)
  Receive Date: 20100225
  Receipt Date: 20100218
  Transmission Date: 20100710
  Serious: Yes (Death, Other)
  Sender: FDA-Public Use
  Company Number: JP-ROCHE-681097

PATIENT
  Sex: Male
  Weight: 72 kg

DRUGS (7)
  1. AVASTIN [Suspect]
     Indication: LUNG ADENOCARCINOMA
     Route: 041
     Dates: start: 20100108, end: 20100108
  2. TARCEVA [Suspect]
     Indication: LUNG ADENOCARCINOMA
     Route: 048
     Dates: start: 20091217, end: 20091228
  3. CARBOPLATIN [Suspect]
     Indication: LUNG ADENOCARCINOMA
     Route: 041
     Dates: start: 20090422, end: 20091209
  4. CARBOPLATIN [Suspect]
     Route: 041
     Dates: start: 20100108, end: 20100108
  5. ALIMTA [Suspect]
     Indication: LUNG ADENOCARCINOMA
     Dosage: DRUG: ALIMTA(PEMETREXED SODIUM HYDRATE)
     Route: 041
     Dates: start: 20100108, end: 20100108
  6. SOLU-MEDROL [Suspect]
     Indication: INTERSTITIAL LUNG DISEASE
     Dosage: DRUG: SOLU_MEDROL(METHYLPREDNISOLONE SODIUM SUCCINATE)
     Route: 042
     Dates: start: 20091228, end: 20100127
  7. SOLU-MEDROL [Suspect]
     Dosage: DRUG: SOLU_MEDROL(METHYLPREDNISOLONE SODIUM SUCCINATE)
     Route: 042
     Dates: start: 20100115, end: 20100123

REACTIONS (4)
  - INTERSTITIAL LUNG DISEASE [None]
  - LUNG ADENOCARCINOMA [None]
  - MALIGNANT NEOPLASM PROGRESSION [None]
  - PNEUMOCYSTIS JIROVECI PNEUMONIA [None]
